FAERS Safety Report 7802818-1 (Version None)
Quarter: 2011Q4

REPORT INFORMATION
  Report Type: 
  Country: None (occurrence: None)
  Receive Date: 20111007
  Receipt Date: 20110929
  Transmission Date: 20120403
  Serious: Yes (Hospitalization)
  Sender: FDA-Public Use
  Company Number: JP-MERCK-1106USA02432

PATIENT
  Age: 69 Year
  Sex: Female

DRUGS (11)
  1. HYZAAR [Concomitant]
     Route: 048
     Dates: start: 20080913
  2. SINGULAIR [Concomitant]
     Route: 048
     Dates: start: 20091109
  3. JUVELA N [Concomitant]
     Route: 065
     Dates: start: 20080624
  4. ACTOS [Concomitant]
     Route: 065
     Dates: start: 20080328
  5. EPLERENONE [Concomitant]
     Route: 065
     Dates: start: 20081212
  6. ASMANEX TWISTHALER [Concomitant]
     Route: 065
     Dates: start: 20091212
  7. JANUVIA [Suspect]
     Indication: TYPE 2 DIABETES MELLITUS
     Route: 048
     Dates: start: 20100210
  8. AMARYL [Concomitant]
     Route: 065
     Dates: start: 20070123
  9. ZYRTEC [Concomitant]
     Route: 065
     Dates: start: 20100412
  10. ALLERMIST [Concomitant]
     Route: 065
     Dates: start: 20100412
  11. NORVASC [Concomitant]
     Route: 065
     Dates: start: 20021206

REACTIONS (1)
  - INTERSTITIAL LUNG DISEASE [None]
